FAERS Safety Report 8985291 (Version 3)
Quarter: 2013Q1

REPORT INFORMATION
  Report Type: Report from Study
  Country: US (occurrence: US)
  Receive Date: 20121226
  Receipt Date: 20130124
  Transmission Date: 20140127
  Serious: No
  Sender: FDA-Public Use
  Company Number: US-VERTEX PHARMACEUTICALS INC.-2012-023758

PATIENT
  Age: 62 None
  Sex: Male
  Weight: 66 kg

DRUGS (6)
  1. VX-950 (TELAPREVIR) [Suspect]
     Indication: HEPATITIS C
     Dosage: 750 MG, TID
     Route: 048
     Dates: start: 20121025, end: 20121212
  2. VX-950 (TELAPREVIR) [Suspect]
     Dosage: 750 MG, TID
     Route: 048
     Dates: start: 20121214, end: 20121224
  3. PEGASYS [Suspect]
     Indication: HEPATITIS C
     Dosage: 180 ?G, QW
     Route: 058
     Dates: start: 20121025, end: 20121212
  4. PEGASYS [Suspect]
     Dosage: 180 ?G, QW
     Route: 058
     Dates: start: 20121214, end: 20121228
  5. RIBAVIRIN [Suspect]
     Indication: HEPATITIS C
     Dosage: 600 MG AM, 400 MG PM
     Route: 048
     Dates: start: 20121026, end: 20121212
  6. RIBAVIRIN [Suspect]
     Dosage: 600 MG, QD
     Route: 048
     Dates: start: 20121214, end: 20121228

REACTIONS (11)
  - Drug dose omission [Recovered/Resolved]
  - Dyspnoea [Not Recovered/Not Resolved]
  - White blood cell count decreased [Not Recovered/Not Resolved]
  - Bone pain [Not Recovered/Not Resolved]
  - Arthralgia [Unknown]
  - Myalgia [Not Recovered/Not Resolved]
  - Fatigue [Not Recovered/Not Resolved]
  - Rash papular [Recovered/Resolved]
  - Red blood cell count decreased [Not Recovered/Not Resolved]
  - Pruritus [Unknown]
  - Anorectal discomfort [Recovered/Resolved]
